FAERS Safety Report 17085944 (Version 1)
Quarter: 2019Q4

REPORT INFORMATION
  Report Type: Spontaneous
  Country: US (occurrence: US)
  Receive Date: 20191127
  Receipt Date: 20191127
  Transmission Date: 20200122
  Serious: Yes (Life-Threatening, Hospitalization)
  Sender: FDA-Public Use
  Company Number: None

PATIENT
  Age: 60 Year
  Sex: Female
  Weight: 63.8 kg

DRUGS (2)
  1. OLANZAPINE. [Suspect]
     Active Substance: OLANZAPINE
     Indication: SCHIZOAFFECTIVE DISORDER
     Route: 048
  2. BUPROPION XL [Suspect]
     Active Substance: BUPROPION
     Indication: DEPRESSION
     Route: 048

REACTIONS (2)
  - Seizure [None]
  - Neuroleptic malignant syndrome [None]

NARRATIVE: CASE EVENT DATE: 20190725
